FAERS Safety Report 10032226 (Version 2)
Quarter: 2014Q1

REPORT INFORMATION
  Report Type: Spontaneous
  Country: US (occurrence: US)
  Receive Date: 20140324
  Receipt Date: 20140324
  Transmission Date: 20141002
  Serious: Yes (Disabling)
  Sender: FDA-Public Use
  Company Number: US-GE HEALTHCARE MEDICAL DIAGNOSTICS-OSCN-PR-0803S-0099

PATIENT
  Age: 66 Year
  Sex: Male

DRUGS (11)
  1. OMNISCAN [Suspect]
     Indication: SKIN ULCER
     Route: 065
     Dates: start: 20040123, end: 20040123
  2. OMNISCAN [Suspect]
     Indication: IMPAIRED HEALING
     Route: 042
     Dates: start: 20040204, end: 20040204
  3. OMNISCAN [Suspect]
     Indication: PERIPHERAL VASCULAR DISORDER
     Route: 065
     Dates: start: 20040618, end: 20040618
  4. OMNISCAN [Suspect]
     Indication: SKIN ULCER
     Route: 042
     Dates: start: 20040805, end: 20040805
  5. OMNISCAN [Suspect]
     Indication: SKIN ULCER
     Route: 042
     Dates: start: 20040910, end: 20040910
  6. OMNISCAN [Suspect]
     Indication: OSTEOMYELITIS
     Route: 042
     Dates: start: 20050120, end: 20050120
  7. MAGNEVIST [Suspect]
     Indication: PAIN IN EXTREMITY
     Route: 042
     Dates: start: 20010620, end: 20010620
  8. MAGNEVIST [Suspect]
     Indication: INTERMITTENT CLAUDICATION
     Route: 042
     Dates: start: 20030709, end: 20030709
  9. VISIPAQUE [Concomitant]
     Indication: CATHETERISATION CARDIAC
     Dates: start: 20030718, end: 20030718
  10. WARFARIN [Concomitant]
  11. OMNIPAQUE [Concomitant]
     Route: 065
     Dates: start: 20040907, end: 20040907

REACTIONS (1)
  - Nephrogenic systemic fibrosis [Not Recovered/Not Resolved]
